FAERS Safety Report 14773434 (Version 1)
Quarter: 2018Q2

REPORT INFORMATION
  Report Type: Spontaneous
  Country: GB (occurrence: GB)
  Receive Date: 20180418
  Receipt Date: 20180418
  Transmission Date: 20180711
  Serious: Yes (Other)
  Sender: FDA-Public Use
  Company Number: PHHY2018GB067588

PATIENT
  Age: 25 Year
  Sex: Male

DRUGS (1)
  1. DEFEROXAMINE [Suspect]
     Active Substance: DEFEROXAMINE\DEFEROXAMINE MESYLATE
     Indication: THALASSAEMIA BETA
     Dosage: 50 MG/KG, UNK
     Route: 041

REACTIONS (2)
  - Ototoxicity [Unknown]
  - Spinal disorder [Unknown]
